FAERS Safety Report 4997514-2 (Version None)
Quarter: 2006Q2

REPORT INFORMATION
  Report Type: 
  Country: None (occurrence: None)
  Receive Date: 20060509
  Receipt Date: 20060119
  Transmission Date: 20061013
  Serious: Yes (Hospitalization)
  Sender: FDA-Public Use
  Company Number: US-MERCK-0601USA02606

PATIENT
  Age: 43 Year
  Sex: Male
  Weight: 80 kg

DRUGS (11)
  1. VIOXX [Suspect]
     Indication: ARTHRITIS
     Route: 048
     Dates: start: 20000103, end: 20020611
  2. VIOXX [Suspect]
     Route: 048
     Dates: start: 20000103, end: 20020611
  3. VIOXX [Suspect]
     Indication: BACK PAIN
     Route: 048
     Dates: start: 20000103, end: 20020611
  4. VIOXX [Suspect]
     Route: 048
     Dates: start: 20000103, end: 20020611
  5. ALTACE [Concomitant]
     Indication: CARDIAC DISORDER
     Route: 065
  6. ATENOL [Concomitant]
     Indication: CARDIAC DISORDER
     Route: 065
     Dates: start: 20020314
  7. NORVASC [Concomitant]
     Indication: CARDIAC DISORDER
     Route: 065
     Dates: start: 20021212
  8. ZOCOR [Concomitant]
     Indication: BLOOD CHOLESTEROL INCREASED
     Route: 048
     Dates: start: 20011220
  9. GEMFIBROZIL [Concomitant]
     Route: 065
     Dates: start: 20020401, end: 20050127
  10. PERCOCET [Concomitant]
     Indication: PAIN
     Route: 065
     Dates: start: 20000626, end: 20030223
  11. IMITREX [Concomitant]
     Indication: MIGRAINE
     Route: 065
     Dates: start: 20000103, end: 20030507

REACTIONS (3)
  - BACK PAIN [None]
  - CHEST PAIN [None]
  - MYOCARDIAL INFARCTION [None]
